FAERS Safety Report 6336564-0 (Version None)
Quarter: 2009Q3

REPORT INFORMATION
  Report Type: 
  Country: None (occurrence: None)
  Receive Date: 20090831
  Receipt Date: 20090831
  Transmission Date: 20100115
  Serious: No
  Sender: FDA-Public Use
  Company Number: None

PATIENT
  Age: 51 Year
  Sex: Female
  Weight: 49.8957 kg

DRUGS (2)
  1. LEVOXYL [Suspect]
     Dosage: .088 MG 1 X DAILY PO
     Route: 048
     Dates: start: 20090720, end: 20090829
  2. SYNTHROID [Concomitant]

REACTIONS (17)
  - ALOPECIA [None]
  - AMNESIA [None]
  - ANXIETY [None]
  - ARTHRALGIA [None]
  - ASTHENIA [None]
  - BLOOD PRESSURE FLUCTUATION [None]
  - DECREASED APPETITE [None]
  - DRUG INEFFECTIVE [None]
  - FATIGUE [None]
  - FEELING ABNORMAL [None]
  - HEART RATE IRREGULAR [None]
  - INSOMNIA [None]
  - MOOD SWINGS [None]
  - MYALGIA [None]
  - PRODUCT SUBSTITUTION ISSUE [None]
  - REACTION TO DRUG EXCIPIENTS [None]
  - VISION BLURRED [None]
